FAERS Safety Report 20885033 (Version 6)
Quarter: 2022Q4

REPORT INFORMATION
  Report Type: Spontaneous
  Country: CA (occurrence: CA)
  Receive Date: 20220527
  Receipt Date: 20221118
  Transmission Date: 20230113
  Serious: Yes (Other)
  Sender: FDA-Public Use
  Company Number: CA-PFIZER INC-202200755366

PATIENT
  Age: 35 Year
  Sex: Female

DRUGS (3)
  1. ABRILADA [Suspect]
     Active Substance: ADALIMUMAB-AFZB
     Indication: Colitis ulcerative
     Dosage: 1 DF, WEEK 0 160 MG, WEEK 2 80 MG AND THEN 40 MG EVERY OTHER WEEK
     Route: 058
     Dates: start: 20220420, end: 2022
  2. ABRILADA [Suspect]
     Active Substance: ADALIMUMAB-AFZB
     Dosage: 40 MG, WEEKLY
     Route: 058
  3. ABRILADA [Suspect]
     Active Substance: ADALIMUMAB-AFZB
     Dosage: 40 MG, WEEKLY
     Route: 058
     Dates: start: 2022

REACTIONS (7)
  - Rectal haemorrhage [Not Recovered/Not Resolved]
  - Off label use [Unknown]
  - COVID-19 [Unknown]
  - Urticaria [Not Recovered/Not Resolved]
  - Blister [Unknown]
  - Pruritus [Unknown]
  - Condition aggravated [Not Recovered/Not Resolved]

NARRATIVE: CASE EVENT DATE: 20220101
